FAERS Safety Report 5059104-5 (Version None)
Quarter: 2006Q3

REPORT INFORMATION
  Report Type: 
  Country: None (occurrence: None)
  Receive Date: 20060718
  Receipt Date: 20060705
  Transmission Date: 20061208
  Serious: Yes (Other)
  Sender: FDA-Public Use
  Company Number: 2006084568

PATIENT
  Age: 58 Year
  Sex: Male
  Weight: 76.2043 kg

DRUGS (6)
  1. LYRICA [Suspect]
     Indication: DIABETIC NEUROPATHY
     Dosage: 150 MG (75 MG 2 IN 1 D) ORAL
     Route: 048
     Dates: start: 20060703, end: 20060705
  2. LANTUS [Concomitant]
  3. NOVOLOG [Concomitant]
  4. LOTREL [Concomitant]
  5. MONTELEUKAST                   (MONTELEUKAST) [Concomitant]
  6. NEXIUM [Concomitant]

REACTIONS (5)
  - BLOOD GLUCOSE INCREASED [None]
  - FATIGUE [None]
  - SOMNOLENCE [None]
  - UNDERDOSE [None]
  - UNEVALUABLE EVENT [None]
